FAERS Safety Report 7035338-5 (Version None)
Quarter: 2010Q4

REPORT INFORMATION
  Report Type: 
  Country: None (occurrence: None)
  Receive Date: 20101007
  Receipt Date: 20101007
  Transmission Date: 20110411
  Serious: No
  Sender: FDA-Public Use
  Company Number: None

PATIENT
  Age: 68 Year
  Sex: Male
  Weight: 88.4514 kg

DRUGS (1)
  1. ALLI (ORLISTAT) [Suspect]
     Indication: WEIGHT CONTROL
     Dosage: 1 CAPSULE WITH EACH MEAL PO
     Route: 048
     Dates: start: 20091001, end: 20101006

REACTIONS (1)
  - PRURITUS [None]
